FAERS Safety Report 21720273 (Version 1)
Quarter: 2022Q4

REPORT INFORMATION
  Report Type: Other
  Country: CN (occurrence: None)
  Receive Date: 20221213
  Receipt Date: 20221213
  Transmission Date: 20230112
  Serious: Yes (Death)
  Sender: FDA-Public Use
  Company Number: CN-ROCHE-2664037

PATIENT
  Age: 46 Year
  Sex: Male
  Weight: 55 kg

DRUGS (1)
  1. AVASTIN [Suspect]
     Active Substance: BEVACIZUMAB
     Indication: Rectal cancer
     Dosage: FORM OF ADMIN:100MG, INJECTION
     Route: 041
     Dates: start: 20170728

REACTIONS (3)
  - Death [Fatal]
  - Fatigue [Unknown]
  - Hepatic lesion [Not Recovered/Not Resolved]
